FAERS Safety Report 9965396 (Version 1)
Quarter: 2014Q1

REPORT INFORMATION
  Report Type: Report from Study
  Country: US (occurrence: US)
  Receive Date: 20140305
  Receipt Date: 20140305
  Transmission Date: 20141002
  Serious: No
  Sender: FDA-Public Use
  Company Number: US-ABBVIE-13P-163-1126173-00

PATIENT
  Age: 36 Year
  Sex: Female

DRUGS (9)
  1. HUMIRA [Suspect]
     Indication: RHEUMATOID ARTHRITIS
     Dates: start: 20130712
  2. CYMBALTA [Concomitant]
     Indication: MIGRAINE
     Dosage: TAKE IN AM
  3. CYMBALTA [Concomitant]
     Indication: RHEUMATOID ARTHRITIS
  4. PROPANOLOL ER [Concomitant]
     Indication: MIGRAINE
     Dosage: 1 IN AM AND 2 AT BEDTIME
  5. TAGAMET [Concomitant]
     Indication: OESOPHAGITIS
  6. PLAQUENIL [Concomitant]
     Indication: RHEUMATOID ARTHRITIS
  7. SINGULAIR [Concomitant]
     Indication: SEASONAL ALLERGY
  8. SYNTHROID [Concomitant]
     Indication: HYPOTHYROIDISM
  9. DOXEPIN [Concomitant]
     Indication: INSOMNIA
     Dosage: AT BEDTIME

REACTIONS (3)
  - Device malfunction [Recovered/Resolved]
  - Injection site haemorrhage [Recovered/Resolved]
  - Incorrect dose administered [Recovered/Resolved]
